FAERS Safety Report 18706828 (Version 1)
Quarter: 2021Q1

REPORT INFORMATION
  Report Type: Spontaneous
  Country: CA (occurrence: CA)
  Receive Date: 20210106
  Receipt Date: 20210106
  Transmission Date: 20210419
  Serious: Yes (Other)
  Sender: FDA-Public Use
  Company Number: CA-PFIZER INC-2021002726

PATIENT
  Age: 55 Year
  Sex: Male

DRUGS (1)
  1. METHOTREXATE SODIUM. [Suspect]
     Active Substance: METHOTREXATE SODIUM
     Dosage: UNK
     Route: 065

REACTIONS (6)
  - Asthma [Unknown]
  - Sleep apnoea syndrome [Unknown]
  - Rheumatoid arthritis [Unknown]
  - Immune system disorder [Unknown]
  - Nephrolithiasis [Unknown]
  - Spinal compression fracture [Unknown]
